FAERS Safety Report 5861323-2 (Version None)
Quarter: 2008Q3

REPORT INFORMATION
  Report Type: 
  Country: None (occurrence: None)
  Receive Date: 20080827
  Receipt Date: 20080414
  Transmission Date: 20090109
  Serious: No
  Sender: FDA-Public Use
  Company Number: US-ABBOTT-08P-163-0447181-00

PATIENT
  Sex: Female

DRUGS (3)
  1. COATED PDS [Suspect]
     Indication: BLOOD CHOLESTEROL INCREASED
     Route: 048
     Dates: start: 20080301, end: 20080409
  2. COATED PDS [Suspect]
     Route: 048
     Dates: start: 20080412, end: 20080413
  3. FISH OIL [Concomitant]
     Indication: DRUG USE FOR UNKNOWN INDICATION
     Route: 048

REACTIONS (5)
  - ERYTHEMA [None]
  - FLUSHING [None]
  - PARAESTHESIA [None]
  - SKIN BURNING SENSATION [None]
  - SUNBURN [None]
